FAERS Safety Report 12232904 (Version 2)
Quarter: 2016Q2

REPORT INFORMATION
  Report Type: Report from Study
  Country: JP (occurrence: JP)
  Receive Date: 20160402
  Receipt Date: 20160428
  Transmission Date: 20160815
  Serious: Yes (Other)
  Sender: FDA-Public Use
  Company Number: JP-BRISTOL-MYERS SQUIBB COMPANY-BMS-2016-024281

PATIENT
  Age: 63 Year
  Sex: Female

DRUGS (3)
  1. NEUROTROPIN                        /00398601/ [Concomitant]
     Active Substance: CYANOCOBALAMIN\LIDOCAINE HYDROCHLORIDE\PYRIDOXINE HYDROCHLORIDE\THIAMINE HYDROCHLORIDE
     Indication: PRODUCT USED FOR UNKNOWN INDICATION
     Route: 065
  2. LYRICA [Concomitant]
     Active Substance: PREGABALIN
     Indication: PRODUCT USED FOR UNKNOWN INDICATION
     Route: 065
  3. NIVOLUMAB [Suspect]
     Active Substance: NIVOLUMAB
     Indication: NON-SMALL CELL LUNG CANCER
     Dosage: 3 MG/KG, Q2WK
     Route: 041
     Dates: start: 20160310, end: 20160310

REACTIONS (2)
  - Interstitial lung disease [Unknown]
  - Atelectasis [Not Recovered/Not Resolved]

NARRATIVE: CASE EVENT DATE: 20160323
